FAERS Safety Report 5721723-8 (Version None)
Quarter: 2008Q2

REPORT INFORMATION
  Report Type: 
  Country: None (occurrence: None)
  Receive Date: 20080429
  Receipt Date: 20070330
  Transmission Date: 20081010
  Serious: No
  Sender: FDA-Public Use
  Company Number: US-ASTRAZENECA-2007UW06477

PATIENT
  Age: 56 Year
  Sex: Female

DRUGS (12)
  1. NEXIUM [Suspect]
     Route: 048
  2. NEXIUM [Suspect]
     Route: 048
  3. LASIX [Concomitant]
  4. GLYBURIDE [Concomitant]
  5. ASPIRIN [Concomitant]
  6. ZITHROMAX [Concomitant]
  7. PREDNISONE [Concomitant]
  8. SOLU-MEDROL [Concomitant]
     Route: 042
  9. MAALOX [Concomitant]
  10. ADVAIR HFA [Concomitant]
     Dosage: 250/50
  11. COZAAR [Concomitant]
  12. METFORMIN HCL [Concomitant]

REACTIONS (3)
  - CHEST DISCOMFORT [None]
  - DYSPNOEA [None]
  - RASH [None]
